FAERS Safety Report 10507568 (Version 3)
Quarter: 2014Q4

REPORT INFORMATION
  Report Type: Spontaneous
  Country: US (occurrence: US)
  Receive Date: 20141009
  Receipt Date: 20141121
  Transmission Date: 20150528
  Serious: No
  Sender: FDA-Public Use
  Company Number: US-PFIZER INC-2014277195

PATIENT
  Age: 54 Year
  Sex: Female
  Weight: 43.08 kg

DRUGS (1)
  1. LYRICA [Suspect]
     Active Substance: PREGABALIN
     Indication: FIBROMYALGIA
     Dosage: 300 MG (TWO 150MG), 1X/DAY
     Dates: start: 201404, end: 2014

REACTIONS (3)
  - Influenza [Unknown]
  - Weight decreased [Unknown]
  - Drug withdrawal syndrome [Unknown]

NARRATIVE: CASE EVENT DATE: 2014
